FAERS Safety Report 24390536 (Version 1)
Quarter: 2024Q4

REPORT INFORMATION
  Report Type: Spontaneous
  Country: US (occurrence: US)
  Receive Date: 20241003
  Receipt Date: 20241003
  Transmission Date: 20250114
  Serious: No
  Sender: JOHNSON AND JOHNSON
  Company Number: US-JNJFOC-20241001773

PATIENT
  Sex: Female

DRUGS (22)
  1. BENADRYL [Suspect]
     Active Substance: DIPHENHYDRAMINE HYDROCHLORIDE
     Indication: Chemical burn
     Route: 065
     Dates: start: 202408
  2. BENADRYL [Suspect]
     Active Substance: DIPHENHYDRAMINE HYDROCHLORIDE
     Indication: Skin irritation
  3. BENADRYL [Suspect]
     Active Substance: DIPHENHYDRAMINE HYDROCHLORIDE
     Indication: Erythema
  4. BENADRYL [Suspect]
     Active Substance: DIPHENHYDRAMINE HYDROCHLORIDE
     Indication: Erythema
  5. BENADRYL [Suspect]
     Active Substance: DIPHENHYDRAMINE HYDROCHLORIDE
     Indication: Blister
  6. BENADRYL [Suspect]
     Active Substance: DIPHENHYDRAMINE HYDROCHLORIDE
     Indication: Eye swelling
  7. BENADRYL [Suspect]
     Active Substance: DIPHENHYDRAMINE HYDROCHLORIDE
     Indication: Skin tightness
  8. BENADRYL [Suspect]
     Active Substance: DIPHENHYDRAMINE HYDROCHLORIDE
     Indication: Pain
  9. IBUPROFEN [Suspect]
     Active Substance: IBUPROFEN
     Indication: Chemical burn
     Route: 065
     Dates: start: 202408
  10. IBUPROFEN [Suspect]
     Active Substance: IBUPROFEN
     Indication: Skin irritation
  11. IBUPROFEN [Suspect]
     Active Substance: IBUPROFEN
     Indication: Erythema
  12. IBUPROFEN [Suspect]
     Active Substance: IBUPROFEN
     Indication: Erythema
  13. IBUPROFEN [Suspect]
     Active Substance: IBUPROFEN
     Indication: Blister
  14. IBUPROFEN [Suspect]
     Active Substance: IBUPROFEN
     Indication: Eye swelling
  15. IBUPROFEN [Suspect]
     Active Substance: IBUPROFEN
     Indication: Skin tightness
  16. IBUPROFEN [Suspect]
     Active Substance: IBUPROFEN
     Indication: Pain
  17. HYDROCORTISONE [Concomitant]
     Active Substance: HYDROCORTISONE
     Indication: Chemical burn
     Route: 065
  18. HYDROCORTISONE [Concomitant]
     Active Substance: HYDROCORTISONE
     Indication: Erythema
  19. HYDROCORTISONE [Concomitant]
     Active Substance: HYDROCORTISONE
     Indication: Skin irritation
  20. HYDROCORTISONE [Concomitant]
     Active Substance: HYDROCORTISONE
     Indication: Erythema
  21. HYDROCORTISONE [Concomitant]
     Active Substance: HYDROCORTISONE
     Indication: Blister
  22. HYDROCORTISONE [Concomitant]
     Active Substance: HYDROCORTISONE
     Indication: Eye swelling

REACTIONS (1)
  - Product use in unapproved indication [Unknown]

NARRATIVE: CASE EVENT DATE: 20240801
